FAERS Safety Report 8220547 (Version 2)
Quarter: 2012Q4

REPORT INFORMATION
  Report Type: 
  Country: US (occurrence: US)
  Receive Date: 20111101
  Receipt Date: 20121023
  Transmission Date: 20130627
  Serious: No
  Sender: FDA-Public Use
  Company Number: US-AMGEN-USASP2011031850

PATIENT
  Age: 30 Year
  Sex: Female

DRUGS (3)
  1. ENBREL [Suspect]
     Indication: RHEUMATOID ARTHRITIS
     Dosage: 50 mg, qwk
     Route: 058
     Dates: start: 20060601, end: 201004
  2. PRENATAL VITAMINS                  /01549301/ [Concomitant]
     Dosage: UNK
     Route: 048
  3. LEXAPRO [Concomitant]
     Dosage: 10 mg, UNK
     Route: 048

REACTIONS (3)
  - Vacuum extractor delivery [Recovered/Resolved]
  - Forceps delivery [Recovered/Resolved]
  - Rheumatoid arthritis [Not Recovered/Not Resolved]
